FAERS Safety Report 8004903-0 (Version None)
Quarter: 2011Q4

REPORT INFORMATION
  Report Type: 
  Country: None (occurrence: None)
  Receive Date: 20111223
  Receipt Date: 20111209
  Transmission Date: 20120403
  Serious: Yes (Hospitalization)
  Sender: FDA-Public Use
  Company Number: US-GENZYME-FABR-1002301

PATIENT

DRUGS (36)
  1. MYFORTIC [Concomitant]
     Indication: PROPHYLAXIS AGAINST TRANSPLANT REJECTION
     Dosage: 360 MG, BID
  2. LEVAQUIN [Concomitant]
     Indication: PRODUCT USED FOR UNKNOWN INDICATION
     Dosage: 750 MG, QOD
     Route: 048
     Dates: end: 20100620
  3. CARVEDILOL [Concomitant]
     Indication: PRODUCT USED FOR UNKNOWN INDICATION
     Dosage: 25 MG, QD
     Route: 048
  4. CARVEDILOL [Concomitant]
     Dosage: 6.25 MG, BID
     Route: 048
  5. CHLORTHALIDONE [Concomitant]
     Indication: PRODUCT USED FOR UNKNOWN INDICATION
     Dosage: 25 MG, QD
     Route: 048
  6. FABRAZYME [Suspect]
     Indication: FABRY'S DISEASE
     Dosage: 55 MG, Q2W
     Route: 042
  7. FABRAZYME [Suspect]
     Dosage: 55 MG, Q4W
     Route: 042
     Dates: start: 20100901, end: 20101001
  8. PROGRAF [Concomitant]
     Indication: PROPHYLAXIS AGAINST TRANSPLANT REJECTION
     Dosage: 0.05 MG, QD
     Route: 048
  9. CARVEDILOL [Concomitant]
     Dosage: 6.25 MG, QD
     Route: 048
  10. NORVASC [Concomitant]
     Indication: PRODUCT USED FOR UNKNOWN INDICATION
     Dosage: 10 MG, QD
     Dates: end: 20110101
  11. PREDNISONE TAB [Concomitant]
     Indication: PROPHYLAXIS AGAINST TRANSPLANT REJECTION
     Dosage: 7.5 MG, QD
     Dates: start: 20091223
  12. MYFORTIC [Concomitant]
     Dosage: 180 MG, QD
     Route: 048
  13. SODIUM BICARBONATE [Concomitant]
     Indication: PRODUCT USED FOR UNKNOWN INDICATION
     Dosage: 1300 MG, BID
     Dates: start: 20091211, end: 20110101
  14. LISINOPRIL [Concomitant]
     Dosage: 40 MG, QD
     Route: 048
     Dates: start: 20100701
  15. PROCRIT [Concomitant]
     Indication: PRODUCT USED FOR UNKNOWN INDICATION
     Dosage: 20000 U, QW
     Route: 058
  16. ASPIRIN [Concomitant]
     Indication: PRODUCT USED FOR UNKNOWN INDICATION
     Dosage: 81 MG, QD
     Route: 048
  17. DOXAZOSIN MESYLATE [Concomitant]
     Indication: PRODUCT USED FOR UNKNOWN INDICATION
     Dosage: 1 MG, BID
     Route: 048
  18. CLINDAMYCIN [Concomitant]
     Indication: PRODUCT USED FOR UNKNOWN INDICATION
     Dosage: 600 MG, PRIOR TO DENTAL APPT.
  19. FABRAZYME [Suspect]
     Dosage: 35 MG, UNK
     Route: 042
     Dates: start: 20100201, end: 20100201
  20. FUROSEMIDE [Concomitant]
     Indication: DIURETIC THERAPY
     Dosage: 40 MG, QD
  21. LISINOPRIL [Concomitant]
     Indication: PRODUCT USED FOR UNKNOWN INDICATION
     Dosage: 20 MG, BID
     Route: 048
     Dates: start: 20110519
  22. LISINOPRIL [Concomitant]
     Dosage: 30 MG, QD
     Route: 048
     Dates: start: 20110217
  23. LEVAQUIN [Concomitant]
     Dosage: 500 MG, QD X10 DAYS
     Route: 048
  24. FABRAZYME [Suspect]
     Dosage: 20 MG, UNK
     Route: 042
     Dates: start: 20100301, end: 20100301
  25. VALCYTE [Concomitant]
     Indication: ANTIVIRAL PROPHYLAXIS
     Dosage: 450 MG, QOD
  26. SULFAMETHOXAZOLE W [Concomitant]
     Indication: PROPHYLAXIS URINARY TRACT INFECTION
     Dosage: UNK
     Dates: end: 20110101
  27. SULFAMETHOXAZOLE W [Concomitant]
     Indication: PROPHYLAXIS
  28. PROGRAF [Concomitant]
     Dosage: 0.5 MG, QD
     Route: 048
  29. PROGRAF [Concomitant]
     Dosage: 1.5 MG, QD
     Route: 048
  30. FAMOTIDINE [Concomitant]
     Indication: PROPHYLAXIS
     Dosage: 20 MG, QD
     Route: 048
  31. LISINOPRIL [Concomitant]
     Dosage: 10 MG, QD
     Route: 048
     Dates: start: 20100609, end: 20100701
  32. PROCRIT [Concomitant]
     Dosage: 20000 U, QOW
     Route: 058
     Dates: start: 20100901, end: 20110515
  33. VITAMIN D [Concomitant]
     Indication: PRODUCT USED FOR UNKNOWN INDICATION
     Dosage: 50000 U, QW
  34. CLOTRIMAZOLE [Concomitant]
     Indication: ANTIFUNGAL PROPHYLAXIS
     Dosage: 10 MG, TID
  35. LISINOPRIL [Concomitant]
     Dosage: 20 MG, BID
     Route: 048
     Dates: start: 20110101, end: 20110101
  36. LORAZEPAM [Concomitant]
     Indication: PRODUCT USED FOR UNKNOWN INDICATION
     Dosage: UNK
     Dates: end: 20110401

REACTIONS (1)
  - DEHYDRATION [None]
